FAERS Safety Report 18816942 (Version 1)
Quarter: 2021Q1

REPORT INFORMATION
  Report Type: Spontaneous
  Country: IR (occurrence: IR)
  Receive Date: 20210201
  Receipt Date: 20210201
  Transmission Date: 20210419
  Serious: Yes (Life-Threatening, Hospitalization)
  Sender: FDA-Public Use
  Company Number: IR-MYLANLABS-2021M1005716

PATIENT
  Age: 30 Year
  Sex: Female

DRUGS (11)
  1. LINEZOLID. [Concomitant]
     Active Substance: LINEZOLID
     Indication: ANTIBIOTIC THERAPY
     Route: 065
  2. AMPHOTERICIN B. [Concomitant]
     Active Substance: AMPHOTERICIN B
     Indication: ANTIFUNGAL TREATMENT
     Route: 065
  3. ERYTHROPOIETIN [Suspect]
     Active Substance: ERYTHROPOIETIN
     Indication: ANAEMIA
     Route: 065
  4. FLUCONAZOLE. [Concomitant]
     Active Substance: FLUCONAZOLE
     Indication: ANTIFUNGAL TREATMENT
     Route: 065
  5. METHOTREXATE. [Suspect]
     Active Substance: METHOTREXATE
     Indication: ECTOPIC PREGNANCY
     Dosage: 80 MILLIGRAM SINGLE DOSE
     Route: 030
  6. CIPROFLOXACIN. [Concomitant]
     Active Substance: CIPROFLOXACIN
     Indication: ANTIBIOTIC THERAPY
     Route: 065
  7. LEUCOVORIN                         /00566701/ [Suspect]
     Active Substance: LEUCOVORIN
     Indication: TOXICITY TO VARIOUS AGENTS
     Dosage: 20 MILLIGRAM, Q6H
     Route: 065
  8. VANCOMYCIN [Concomitant]
     Active Substance: VANCOMYCIN
     Indication: ANTIBIOTIC THERAPY
     Route: 065
  9. PIPERACILLIN AND TAZOBACTAM [Concomitant]
     Active Substance: PIPERACILLIN SODIUM\TAZOBACTAM SODIUM
     Indication: ANTIBIOTIC THERAPY
     Route: 065
  10. MEROPENEM. [Concomitant]
     Active Substance: MEROPENEM
     Indication: ANTIBIOTIC THERAPY
     Route: 065
  11. ACYCLOVIR                          /00587301/ [Concomitant]
     Active Substance: ACYCLOVIR
     Indication: ANTIVIRAL TREATMENT
     Route: 065

REACTIONS (15)
  - Blood creatinine increased [Recovered/Resolved]
  - Depressed level of consciousness [Recovering/Resolving]
  - Pseudomonas infection [Recovering/Resolving]
  - Hypernatraemia [Recovering/Resolving]
  - Hypersensitivity [Recovering/Resolving]
  - Anaemia [Recovering/Resolving]
  - Off label use [Unknown]
  - Dehydration [Recovering/Resolving]
  - Stomatitis [Recovering/Resolving]
  - Toxicity to various agents [Recovering/Resolving]
  - Haemorrhage [Recovering/Resolving]
  - Mouth ulceration [Recovering/Resolving]
  - Pancytopenia [Recovering/Resolving]
  - Septic shock [Recovering/Resolving]
  - Alopecia [Recovering/Resolving]
